FAERS Safety Report 21387957 (Version 3)
Quarter: 2022Q4

REPORT INFORMATION
  Report Type: Spontaneous
  Country: US (occurrence: US)
  Receive Date: 20220928
  Receipt Date: 20221117
  Transmission Date: 20230113
  Serious: No
  Sender: FDA-Public Use
  Company Number: US-MYLANLABS-2022M1097203

PATIENT
  Sex: Male
  Weight: 121.1 kg

DRUGS (2)
  1. GABAPENTIN [Suspect]
     Active Substance: GABAPENTIN
     Indication: Affective disorder
     Dosage: 600 MILLIGRAM, TID
     Route: 065
     Dates: start: 200606
  2. GABAPENTIN [Suspect]
     Active Substance: GABAPENTIN
     Indication: Tremor

REACTIONS (2)
  - Amnesia [Unknown]
  - Off label use [Unknown]
